FAERS Safety Report 9060019 (Version 1)
Quarter: 2013Q1

REPORT INFORMATION
  Report Type: Spontaneous
  Country: CL (occurrence: CL)
  Receive Date: 20130212
  Receipt Date: 20130212
  Transmission Date: 20140127
  Serious: Yes (Other)
  Sender: FDA-Public Use
  Company Number: CL-PFIZER INC-2013036142

PATIENT
  Age: 59 Year
  Sex: Male

DRUGS (2)
  1. PRISTIQ [Suspect]
     Indication: DEPRESSION
     Dosage: 50 MG, UNK
  2. CLONAZEPAM [Concomitant]
     Dosage: UNK

REACTIONS (4)
  - Presyncope [Unknown]
  - Palpitations [Unknown]
  - Hyperhidrosis [Unknown]
  - Dizziness [Unknown]
